FAERS Safety Report 8455232-2 (Version None)
Quarter: 2012Q2

REPORT INFORMATION
  Report Type: 
  Country: None (occurrence: None)
  Receive Date: 20120621
  Receipt Date: 20120615
  Transmission Date: 20120825
  Serious: Yes (Death, Other)
  Sender: FDA-Public Use
  Company Number: JP-ASTELLAS-2012US005561

PATIENT
  Sex: Female
  Weight: 55 kg

DRUGS (9)
  1. GEMCITABINE HYDROCHLORIDE [Concomitant]
     Indication: ADENOCARCINOMA PANCREAS
     Dosage: 1000 MG/M2, WEEKLY
     Route: 041
     Dates: start: 20111109, end: 20111116
  2. GEMCITABINE HYDROCHLORIDE [Concomitant]
     Dosage: 1000 MG/M2, WEEKLY
     Route: 041
     Dates: start: 20111130, end: 20120111
  3. GEMCITABINE HYDROCHLORIDE [Concomitant]
     Dosage: 1000 MG/M2, WEEKLY
     Route: 041
     Dates: start: 20120222, end: 20120228
  4. ERLOTINIB HYDROCHLORIDE [Suspect]
     Dosage: 100 MG, UID/QD
     Route: 048
     Dates: start: 20120208, end: 20120320
  5. URSO                               /00465701/ [Concomitant]
     Indication: PRODUCT USED FOR UNKNOWN INDICATION
     Dosage: 3 DF, UID/QD
     Route: 048
     Dates: start: 20120210, end: 20120228
  6. ERLOTINIB HYDROCHLORIDE [Suspect]
     Indication: ADENOCARCINOMA PANCREAS
     Dosage: 100 MG, UID/QD
     Route: 048
     Dates: start: 20111109, end: 20120116
  7. BIFIDOBACTERIUM [Concomitant]
     Indication: PRODUCT USED FOR UNKNOWN INDICATION
     Dosage: 3 DF, UID/QD
     Route: 048
     Dates: start: 20120229, end: 20120320
  8. GEMCITABINE HYDROCHLORIDE [Concomitant]
     Dosage: 1000 MG/M2, WEEKLY
     Route: 041
     Dates: start: 20120208, end: 20120208
  9. LEVOFLOXACIN [Concomitant]
     Indication: PRODUCT USED FOR UNKNOWN INDICATION
     Dosage: 500 MG, UID/QD
     Route: 048
     Dates: start: 20120222, end: 20120224

REACTIONS (4)
  - RASH [None]
  - ASPIRATION [None]
  - CHOLANGITIS [None]
  - VOMITING [None]
